FAERS Safety Report 17838185 (Version 2)
Quarter: 2020Q2

REPORT INFORMATION
  Report Type: Spontaneous
  Country: GB (occurrence: GB)
  Receive Date: 20200528
  Receipt Date: 20200605
  Transmission Date: 20200714
  Serious: Yes (Other)
  Sender: FDA-Public Use
  Company Number: GB-009507513-2005GBR006512

PATIENT
  Sex: Male

DRUGS (2)
  1. EMTRICITABINE (+) TENOFOVIR [Suspect]
     Active Substance: EMTRICITABINE\TENOFOVIR
     Dosage: 200/245 ONCE
  2. ISENTRESS [Suspect]
     Active Substance: RALTEGRAVIR POTASSIUM
     Dosage: 600MG TWICE
     Route: 048

REACTIONS (3)
  - Lower respiratory tract infection [Unknown]
  - Patient isolation [Unknown]
  - Product use issue [Unknown]
